FAERS Safety Report 4728064-6 (Version None)
Quarter: 2005Q3

REPORT INFORMATION
  Report Type: 
  Country: None (occurrence: None)
  Receive Date: 20050721
  Receipt Date: 20050531
  Transmission Date: 20060218
  Serious: No
  Sender: FDA-Public Use
  Company Number: 2005SP001095

PATIENT
  Sex: Female

DRUGS (3)
  1. LUNESTA [Suspect]
     Dosage: HS;ORAL
     Route: 048
     Dates: start: 20050501
  2. ATIVAN [Concomitant]
  3. KLONOPIN [Concomitant]

REACTIONS (4)
  - PHARYNGOLARYNGEAL PAIN [None]
  - PRODUCTIVE COUGH [None]
  - SINUS HEADACHE [None]
  - SOMNOLENCE [None]
